FAERS Safety Report 16558356 (Version 1)
Quarter: 2019Q3

REPORT INFORMATION
  Report Type: Spontaneous
  Country: BG (occurrence: BG)
  Receive Date: 20190711
  Receipt Date: 20190711
  Transmission Date: 20191004
  Serious: Yes (Death)
  Sender: FDA-Public Use
  Company Number: BG-MYLANLABS-2019M1063204

PATIENT
  Age: 58 Year
  Sex: Male
  Weight: 100 kg

DRUGS (8)
  1. INTEGRILIN [Concomitant]
     Active Substance: EPTIFIBATIDE
     Dosage: UNK
  2. HEPARIN [Concomitant]
     Active Substance: HEPARIN SODIUM
     Dosage: UNK
  3. BRILIQUE [Suspect]
     Active Substance: TICAGRELOR
     Dosage: 90 MILLIGRAM
     Route: 048
  4. ROSUVASTATIN. [Suspect]
     Active Substance: ROSUVASTATIN
     Indication: PRODUCT USED FOR UNKNOWN INDICATION
     Dosage: 10 MILLIGRAM
     Route: 048
  5. BRILIQUE [Suspect]
     Active Substance: TICAGRELOR
     Indication: PRODUCT USED FOR UNKNOWN INDICATION
     Dosage: 60 MILLIGRAM, BID
     Route: 048
     Dates: start: 201806
  6. BISOPROLOL [Concomitant]
     Active Substance: BISOPROLOL
     Dosage: UNK
  7. NEBIVOLOL. [Concomitant]
     Active Substance: NEBIVOLOL
     Dosage: UNK
  8. PERINDOPRIL [Concomitant]
     Active Substance: PERINDOPRIL
     Dosage: UNK

REACTIONS (2)
  - Aneurysm ruptured [Fatal]
  - Cerebral haemorrhage [Fatal]
